FAERS Safety Report 18340021 (Version 2)
Quarter: 2020Q4

REPORT INFORMATION
  Report Type: Spontaneous
  Country: SE (occurrence: SE)
  Receive Date: 20201002
  Receipt Date: 20201012
  Transmission Date: 20210113
  Serious: Yes (Death)
  Sender: FDA-Public Use
  Company Number: SE-CELGENEUS-SWE-20200907767

PATIENT
  Age: 79 Year
  Sex: Male
  Weight: 73 kg

DRUGS (16)
  1. NITROLINGUAL [Concomitant]
     Active Substance: NITROGLYCERIN
     Indication: ANGINA PECTORIS
     Route: 048
     Dates: start: 20140520
  2. BEHEPAN [Concomitant]
     Indication: HYPOVITAMINOSIS
     Route: 048
     Dates: start: 20161012
  3. GABAPENTIN. [Concomitant]
     Active Substance: GABAPENTIN
     Indication: ARTHRALGIA
     Dosage: 300 MILLIGRAM
     Route: 048
     Dates: start: 20190702
  4. LENALIDOMIDE [Suspect]
     Active Substance: LENALIDOMIDE
     Indication: PLASMA CELL MYELOMA
     Dosage: 10 MILLIGRAM
     Route: 048
     Dates: start: 20161027, end: 20200919
  5. DEXAMETHASONE. [Suspect]
     Active Substance: DEXAMETHASONE
     Indication: PLASMA CELL MYELOMA
     Dosage: 20 MILLIGRAM
     Route: 048
     Dates: start: 20161027, end: 20200916
  6. DENTAL MINT [Concomitant]
     Indication: DENTAL CARIES
     Route: 065
  7. MORPHINE [Concomitant]
     Active Substance: MORPHINE
     Indication: BONE PAIN
     Route: 048
     Dates: start: 20160926
  8. IMDUR [Concomitant]
     Active Substance: ISOSORBIDE MONONITRATE
     Indication: ANGINA PECTORIS
     Dosage: 3 MILLIGRAM
     Route: 048
     Dates: start: 20181218
  9. ACETYLCYSTEINE. [Concomitant]
     Active Substance: ACETYLCYSTEINE
     Indication: NASOPHARYNGITIS
     Route: 048
     Dates: start: 20161117
  10. SODIUM FLUORIDE. [Concomitant]
     Active Substance: SODIUM FLUORIDE
     Indication: DRY MOUTH
     Dosage: 0.02
     Route: 048
     Dates: start: 20170202
  11. INNOHEP [Concomitant]
     Active Substance: TINZAPARIN SODIUM
     Indication: THROMBOSIS PROPHYLAXIS
     Dosage: 4500 IU (INTERNATIONAL UNIT)
     Route: 058
     Dates: start: 20161027
  12. ALVEDON [Concomitant]
     Active Substance: ACETAMINOPHEN
     Indication: BONE PAIN
     Dosage: 16000 MILLIGRAM
     Route: 048
     Dates: start: 20160912
  13. BACTRIM/EUSAPRIM [Concomitant]
     Indication: ANTIFUNGAL PROPHYLAXIS
     Dosage: 160/800 MG
     Route: 048
     Dates: start: 20161124
  14. LACTULOSE. [Concomitant]
     Active Substance: LACTULOSE
     Indication: CONSTIPATION PROPHYLAXIS
     Dosage: 670 MILLIGRAM
     Route: 048
     Dates: start: 20160926
  15. LAXOBERAL [Concomitant]
     Active Substance: SODIUM PICOSULFATE
     Indication: CONSTIPATION PROPHYLAXIS
     Dosage: 7.5 MILLIGRAM
     Route: 048
     Dates: start: 20160926
  16. DOLCONTIN [Concomitant]
     Active Substance: MORPHINE
     Indication: BONE PAIN
     Dosage: 40 MILLIGRAM
     Route: 048
     Dates: start: 20160926

REACTIONS (1)
  - Myocardial infarction [Fatal]

NARRATIVE: CASE EVENT DATE: 20200920
